FAERS Safety Report 16286728 (Version 1)
Quarter: 2019Q2

REPORT INFORMATION
  Report Type: Spontaneous
  Country: DE (occurrence: DE)
  Receive Date: 20190508
  Receipt Date: 20190508
  Transmission Date: 20190711
  Serious: Yes (Hospitalization)
  Sender: FDA-Public Use
  Company Number: PHHY2019DE094665

PATIENT
  Sex: Male
  Weight: 79 kg

DRUGS (6)
  1. OXALIPLATIN. [Suspect]
     Active Substance: OXALIPLATIN
     Indication: ADENOCARCINOMA OF COLON
     Dosage: 133 MG, CYCLIC
     Route: 042
     Dates: start: 20190212
  2. 5-FU MEDAC [Suspect]
     Active Substance: FLUOROURACIL
     Indication: ADENOCARCINOMA OF COLON
     Dosage: 1891 MG, CYCLIC
     Route: 042
     Dates: start: 20190212
  3. 5-FU MEDAC [Suspect]
     Active Substance: FLUOROURACIL
     Dosage: 1891 MG, CYCLIC, LAST ADMINISTRATION BEFORE ONSET
     Route: 042
     Dates: start: 20190312
  4. OXALIPLATIN. [Suspect]
     Active Substance: OXALIPLATIN
     Dosage: 133 MG, CYCLIC, LAST ADMINISTRATION BEFORE ONSET
     Route: 042
     Dates: start: 20190312
  5. ONCOFOLIC [Concomitant]
     Active Substance: FOLATE SODIUM
     Indication: ADENOCARCINOMA OF COLON
     Dosage: 630 MG, CYCLIC
     Route: 042
     Dates: start: 20190212
  6. ONCOFOLIC [Concomitant]
     Active Substance: FOLATE SODIUM
     Dosage: 630 MG, CYCLIC, LAST ADMINISTRATION BEFORE ONSET
     Route: 042
     Dates: start: 20190312

REACTIONS (2)
  - Pancytopenia [Recovered/Resolved]
  - Bone marrow failure [Recovered/Resolved]

NARRATIVE: CASE EVENT DATE: 20190317
